FAERS Safety Report 6335951-4 (Version None)
Quarter: 2009Q3

REPORT INFORMATION
  Report Type: 
  Country: None (occurrence: None)
  Receive Date: 20090831
  Receipt Date: 20090831
  Transmission Date: 20100115
  Serious: Yes (Other)
  Sender: FDA-Public Use
  Company Number: None

PATIENT
  Sex: Female

DRUGS (1)
  1. MIRTAZAPINE [Suspect]
     Dosage: 1 TAB AT BED P.O. EARLY JULY
     Route: 048
     Dates: start: 20090701

REACTIONS (4)
  - CONDITION AGGRAVATED [None]
  - DEPRESSIVE SYMPTOM [None]
  - DRUG EFFECT DECREASED [None]
  - PRODUCT SUBSTITUTION ISSUE [None]
